FAERS Safety Report 8099130-5 (Version None)
Quarter: 2012Q1

REPORT INFORMATION
  Report Type: 
  Country: None (occurrence: None)
  Receive Date: 20120129
  Receipt Date: 20111004
  Transmission Date: 20120608
  Serious: No
  Sender: FDA-Public Use
  Company Number: US-ABBOTT-11P-163-0860866-00

PATIENT
  Age: 63 Year
  Sex: Female

DRUGS (3)
  1. ASACOL [Concomitant]
     Indication: CROHN'S DISEASE
     Route: 048
  2. AMITRIPTYLINE HCL [Concomitant]
     Indication: FIBROMYALGIA
     Route: 048
  3. HUMIRA [Suspect]
     Indication: CROHN'S DISEASE
     Dates: start: 20110719

REACTIONS (2)
  - INJECTION SITE PAIN [None]
  - VISION BLURRED [None]
